FAERS Safety Report 4688113-0 (Version None)
Quarter: 2005Q2

REPORT INFORMATION
  Report Type: 
  Country: None (occurrence: None)
  Receive Date: 20050609
  Receipt Date: 20050527
  Transmission Date: 20051028
  Serious: Yes (Other)
  Sender: FDA-Public Use
  Company Number: 2005075333

PATIENT
  Sex: Male

DRUGS (3)
  1. GEODON [Suspect]
     Indication: ACUTE PSYCHOSIS
     Dosage: 40 MG (20 MG, 2 IN 1 D)
  2. GEODON [Suspect]
     Indication: MAJOR DEPRESSION
     Dosage: 40 MG (20 MG, 2 IN 1 D)
  3. LEXAPRO [Concomitant]

REACTIONS (7)
  - ANAPHYLACTIC SHOCK [None]
  - DYSKINESIA [None]
  - EXTRAPYRAMIDAL DISORDER [None]
  - HEART RATE INCREASED [None]
  - HYPERSENSITIVITY [None]
  - SWOLLEN TONGUE [None]
  - UNEVALUABLE EVENT [None]
